FAERS Safety Report 4375776-2 (Version None)
Quarter: 2004Q2

REPORT INFORMATION
  Report Type: 
  Country: None (occurrence: None)
  Receive Date: 20040609
  Receipt Date: 20040609
  Transmission Date: 20050107
  Serious: Yes (Life-Threatening, Hospitalization)
  Sender: FDA-Public Use
  Company Number: None

PATIENT
  Age: 53 Year
  Sex: Male
  Weight: 48.3 kg

DRUGS (3)
  1. HUMULIN 70/30 [Suspect]
     Indication: DIABETES MELLITUS
     Dosage: 18 U SQ Q AM; 8 U SQ QAM
     Route: 058
  2. PHENYTOIN [Concomitant]
  3. INSULIN [Concomitant]

REACTIONS (7)
  - ABDOMINAL PAIN UPPER [None]
  - ANION GAP INCREASED [None]
  - BLOOD GLUCOSE INCREASED [None]
  - NAUSEA [None]
  - TREATMENT NONCOMPLIANCE [None]
  - VOMITING [None]
  - WEIGHT DECREASED [None]
